FAERS Safety Report 8329269-8 (Version None)
Quarter: 2012Q2

REPORT INFORMATION
  Report Type: 
  Country: None (occurrence: None)
  Receive Date: 20120502
  Receipt Date: 20120227
  Transmission Date: 20120825
  Serious: No
  Sender: FDA-Public Use
  Company Number: US-ASTRAZENECA-2011SE47112

PATIENT
  Age: 63 Year
  Sex: Female

DRUGS (9)
  1. CLARINEX [Concomitant]
  2. SYNTHROID [Concomitant]
  3. FASLODEX [Suspect]
     Indication: BREAST CANCER
     Route: 030
     Dates: start: 20090801
  4. ZOMETA [Concomitant]
  5. EFFEXOR [Concomitant]
  6. PERCOCET [Concomitant]
     Indication: PAIN
  7. REMERON [Concomitant]
  8. VITAMIN C [Concomitant]
  9. FASLODEX [Suspect]
     Route: 030
     Dates: start: 20110505

REACTIONS (3)
  - COUGH [None]
  - RESPIRATORY TRACT INFECTION [None]
  - DYSGEUSIA [None]
